FAERS Safety Report 9459343 (Version 1)
Quarter: 2013Q3

REPORT INFORMATION
  Report Type: Spontaneous
  Country: US (occurrence: US)
  Receive Date: 20130815
  Receipt Date: 20130815
  Transmission Date: 20140515
  Serious: Yes (Hospitalization)
  Sender: FDA-Public Use
  Company Number: US-ROCHE-1259984

PATIENT
  Age: 60 Year
  Sex: Female
  Weight: 81.58 kg

DRUGS (10)
  1. PEGASYS [Suspect]
     Indication: HEPATITIS C
     Route: 065
     Dates: start: 20121115
  2. RIBAVIRIN [Suspect]
     Indication: HEPATITIS C
     Route: 048
     Dates: start: 20121115
  3. TELAPREVIR [Suspect]
     Indication: HEPATITIS C
     Route: 065
     Dates: start: 20121115
  4. NORCO [Concomitant]
  5. AMLODIPINE [Concomitant]
  6. LANTUS [Concomitant]
  7. NOVOLOG [Concomitant]
  8. SPIRONOLACTONE [Concomitant]
  9. LISINOPRIL [Concomitant]
  10. ZOFRAN [Concomitant]

REACTIONS (7)
  - Hyponatraemia [Unknown]
  - Renal injury [Unknown]
  - Dehydration [Unknown]
  - Chest pain [Unknown]
  - Nausea [Unknown]
  - Vomiting [Unknown]
  - Asthenia [Unknown]
